FAERS Safety Report 19633143 (Version 1)
Quarter: 2021Q3

REPORT INFORMATION
  Report Type: Spontaneous
  Country: US (occurrence: US)
  Receive Date: 20210729
  Receipt Date: 20210729
  Transmission Date: 20211014
  Serious: Yes (Hospitalization)
  Sender: FDA-Public Use
  Company Number: US-TEVA-2021-US-1935854

PATIENT
  Age: 39 Year
  Sex: Female

DRUGS (12)
  1. LEUPROLIDE [Suspect]
     Active Substance: LEUPROLIDE
     Indication: OVULATION INDUCTION
     Dosage: 4MG
     Route: 065
  2. DOXORUBICIN [Concomitant]
     Active Substance: DOXORUBICIN
     Indication: CHEMOTHERAPY
     Dosage: 132MG
     Route: 065
  3. CYCLOPHOSPHAMIDE. [Concomitant]
     Active Substance: CYCLOPHOSPHAMIDE
     Indication: INVASIVE DUCTAL BREAST CARCINOMA
  4. CABERGOLINE. [Suspect]
     Active Substance: CABERGOLINE
     Indication: OVARIAN HYPERSTIMULATION SYNDROME
     Dosage: 0.5MG
     Route: 067
  5. DOXORUBICIN [Concomitant]
     Active Substance: DOXORUBICIN
     Indication: INVASIVE DUCTAL BREAST CARCINOMA
  6. CYCLOPHOSPHAMIDE. [Concomitant]
     Active Substance: CYCLOPHOSPHAMIDE
     Indication: CHEMOTHERAPY
     Dosage: 1320MG
     Route: 065
  7. CABERGOLINE. [Suspect]
     Active Substance: CABERGOLINE
     Indication: PROPHYLAXIS
  8. DOXYCYCLINE. [Concomitant]
     Active Substance: DOXYCYCLINE
     Indication: INFECTION PROPHYLAXIS
     Route: 065
  9. PEGFILGRASTIM [Concomitant]
     Active Substance: PEGFILGRASTIM
     Indication: PRODUCT USED FOR UNKNOWN INDICATION
     Route: 065
  10. LEUPROLIDE [Suspect]
     Active Substance: LEUPROLIDE
     Indication: DRUG THERAPY
     Dosage: DEPOT 11.25MG
     Route: 065
  11. LETROZOLE. [Concomitant]
     Active Substance: LETROZOLE
     Indication: OVULATION INDUCTION
     Dosage: 7.5 MILLIGRAM DAILY;
     Route: 048
  12. CETRORELIX [Concomitant]
     Active Substance: CETRORELIX
     Indication: DRUG THERAPY
     Route: 065

REACTIONS (1)
  - Ovarian hyperstimulation syndrome [Recovering/Resolving]
